FAERS Safety Report 10151108 (Version 2)
Quarter: 2014Q2

REPORT INFORMATION
  Report Type: Spontaneous
  Country: IT (occurrence: IT)
  Receive Date: 20140502
  Receipt Date: 20140630
  Transmission Date: 20141212
  Serious: Yes (Hospitalization)
  Sender: FDA-Public Use
  Company Number: IT-FRI-1000066965

PATIENT
  Age: 65 Year
  Sex: Male

DRUGS (3)
  1. NEBIVOLOL [Suspect]
     Indication: HYPERTENSIVE HEART DISEASE
     Dosage: 1.25 MG
     Route: 048
  2. CARDIRENE [Concomitant]
     Route: 048
  3. TORVAST [Concomitant]
     Route: 048

REACTIONS (4)
  - Bradycardia [Recovered/Resolved]
  - Malaise [Recovered/Resolved]
  - Vertigo [Recovered/Resolved]
  - Abdominal pain [Recovered/Resolved]
